FAERS Safety Report 4696288-2 (Version None)
Quarter: 2005Q2

REPORT INFORMATION
  Report Type: 
  Country: None (occurrence: None)
  Receive Date: 20050620
  Receipt Date: 20050607
  Transmission Date: 20051028
  Serious: Yes (Other)
  Sender: FDA-Public Use
  Company Number: 2005087305

PATIENT
  Age: 79 Year
  Sex: Female
  Weight: 63.9572 kg

DRUGS (3)
  1. CELEBREX [Suspect]
     Indication: OSTEOARTHRITIS
     Dosage: (1 IN 1 D), ORAL
     Route: 048
  2. BENGAY (MENTHOL) [Suspect]
     Indication: OSTEOARTHRITIS
     Dosage: TOPICAL
     Route: 061
     Dates: start: 20040101
  3. ANTIHYPERTENSIVES (ANTIHYPERTENSIVES) [Concomitant]

REACTIONS (8)
  - ATRIAL FIBRILLATION [None]
  - CONDITION AGGRAVATED [None]
  - DRUG INEFFECTIVE [None]
  - FEELING HOT [None]
  - HYPOAESTHESIA [None]
  - INSOMNIA [None]
  - PAIN [None]
  - PAIN IN EXTREMITY [None]
